FAERS Safety Report 5830551-4 (Version None)
Quarter: 2008Q3

REPORT INFORMATION
  Report Type: 
  Country: None (occurrence: None)
  Receive Date: 20080801
  Receipt Date: 20070713
  Transmission Date: 20090109
  Serious: No
  Sender: FDA-Public Use
  Company Number: US-BRISTOL-MYERS SQUIBB COMPANY-13845144

PATIENT
  Sex: Male

DRUGS (2)
  1. COUMADIN [Suspect]
     Dates: start: 20061101
  2. PLAVIX [Suspect]
     Dates: start: 19990101

REACTIONS (1)
  - HAEMORRHAGE [None]
